FAERS Safety Report 23904024 (Version 1)
Quarter: 2024Q2

REPORT INFORMATION
  Report Type: Spontaneous
  Country: US (occurrence: US)
  Receive Date: 20240527
  Receipt Date: 20240527
  Transmission Date: 20240715
  Serious: Yes (Life-Threatening, Other)
  Sender: FDA-Public Use
  Company Number: US-TEVA-VS-3202116

PATIENT
  Age: 37 Year
  Sex: Female

DRUGS (1)
  1. VELIVET [Suspect]
     Active Substance: DESOGESTREL\ETHINYL ESTRADIOL
     Indication: Oral contraception
     Route: 048

REACTIONS (1)
  - Pulmonary embolism [Unknown]
